FAERS Safety Report 9141552 (Version 1)
Quarter: 2013Q1

REPORT INFORMATION
  Report Type: Spontaneous
  Country: US (occurrence: US)
  Receive Date: 20130305
  Receipt Date: 20130305
  Transmission Date: 20140127
  Serious: No
  Sender: FDA-Public Use
  Company Number: US-AMGEN-USASP2013008671

PATIENT
  Age: 21 Year
  Sex: Male

DRUGS (1)
  1. ENBREL [Suspect]
     Indication: SACROILIITIS
     Dosage: 50 MG, ONCE WEEKLY
     Dates: start: 2007

REACTIONS (1)
  - Incorrect storage of drug [Unknown]
